FAERS Safety Report 5075877-X (Version None)
Quarter: 2006Q3

REPORT INFORMATION
  Report Type: 
  Country: None (occurrence: None)
  Receive Date: 20060807
  Receipt Date: 20060807
  Transmission Date: 20061208
  Serious: Yes (Hospitalization)
  Sender: FDA-Public Use
  Company Number: None

PATIENT
  Age: 81 Year
  Sex: Male
  Weight: 62.1 kg

DRUGS (12)
  1. TERAZOSIN HCL [Suspect]
     Dosage: 5MG, DAILY AT BEDTIME, BY MOUTH
     Route: 048
     Dates: start: 20060111, end: 20060402
  2. FERROUS SULFATE TAB [Concomitant]
  3. FOLIC ACID [Concomitant]
  4. PRILOSEC [Concomitant]
  5. MULTI-VITAMIN [Concomitant]
  6. METOPROLOL TARTRATE [Concomitant]
  7. FELODIPINE [Concomitant]
  8. ATENOLOL [Concomitant]
  9. FLUNISOLIDE (NASALIDE) [Concomitant]
  10. IMDUR [Concomitant]
  11. ASPIRIN [Concomitant]
  12. LISINOPRIL [Concomitant]

REACTIONS (2)
  - DIZZINESS [None]
  - SYNCOPE [None]
